FAERS Safety Report 5244980-3 (Version None)
Quarter: 2007Q1

REPORT INFORMATION
  Report Type: 
  Country: None (occurrence: None)
  Receive Date: 20070221
  Receipt Date: 20070221
  Transmission Date: 20070707
  Serious: Yes (Other)
  Sender: FDA-Public Use
  Company Number: None

PATIENT
  Age: 26 Year
  Sex: Male
  Weight: 83.4619 kg

DRUGS (2)
  1. AMOXICILLIN + CLAVULANATE POTASSIUM [Suspect]
     Indication: PHARYNGITIS STREPTOCOCCAL
     Dosage: 875MG  BID PO
     Route: 048
     Dates: start: 20070130, end: 20070203
  2. TYLENOL [Concomitant]

REACTIONS (2)
  - PRURITUS [None]
  - URTICARIA [None]
